FAERS Safety Report 7843422-9 (Version None)
Quarter: 2011Q4

REPORT INFORMATION
  Report Type: 
  Country: None (occurrence: None)
  Receive Date: 20111025
  Receipt Date: 20111010
  Transmission Date: 20120403
  Serious: Yes (Death)
  Sender: FDA-Public Use
  Company Number: US-ROCHE-1006634

PATIENT

DRUGS (3)
  1. HYDROXYUREA [Suspect]
     Indication: HEAD AND NECK CANCER
     Route: 048
  2. FLUOROURACIL [Suspect]
     Indication: HEAD AND NECK CANCER
  3. AVASTIN [Suspect]
     Indication: HEAD AND NECK CANCER

REACTIONS (4)
  - SEPSIS [None]
  - PNEUMONIA ASPIRATION [None]
  - ACUTE RESPIRATORY DISTRESS SYNDROME [None]
  - RENAL FAILURE ACUTE [None]
